FAERS Safety Report 5332868-9 (Version None)
Quarter: 2007Q2

REPORT INFORMATION
  Report Type: 
  Country: None (occurrence: None)
  Receive Date: 20070521
  Receipt Date: 20070516
  Transmission Date: 20071010
  Serious: Yes (Other)
  Sender: FDA-Public Use
  Company Number: UKP07000086

PATIENT
  Age: 66 Year
  Sex: Female
  Weight: 80 kg

DRUGS (2)
  1. DIDRONEL [Suspect]
     Indication: OSTEOPOROSIS
     Dosage: 400 MG, ORAL
     Route: 048
     Dates: start: 20070101, end: 20070101
  2. ACTONEL [Concomitant]

REACTIONS (1)
  - NEUROPATHY PERIPHERAL [None]
